FAERS Safety Report 25643930 (Version 1)
Quarter: 2025Q3

REPORT INFORMATION
  Report Type: Spontaneous
  Country: US (occurrence: US)
  Receive Date: 20250805
  Receipt Date: 20250805
  Transmission Date: 20251020
  Serious: Yes (Hospitalization, Other)
  Sender: RANBAXY
  Company Number: US-SUN PHARMACEUTICAL INDUSTRIES LTD-2025R1-520809

PATIENT
  Age: 53 Year
  Sex: Male

DRUGS (12)
  1. DEXAMETHASONE [Suspect]
     Active Substance: DEXAMETHASONE
     Indication: Pneumomediastinum
     Route: 065
  2. DEXAMETHASONE [Suspect]
     Active Substance: DEXAMETHASONE
     Indication: Mediastinitis
  3. DEXAMETHASONE [Suspect]
     Active Substance: DEXAMETHASONE
     Indication: Thyroid disorder
  4. MEROPENEM [Suspect]
     Active Substance: MEROPENEM
     Indication: Pneumomediastinum
     Route: 065
  5. MEROPENEM [Suspect]
     Active Substance: MEROPENEM
     Indication: Mediastinitis
  6. MEROPENEM [Suspect]
     Active Substance: MEROPENEM
     Indication: Thyroid disorder
  7. MICAFUNGIN [Suspect]
     Active Substance: MICAFUNGIN SODIUM
     Indication: Pneumomediastinum
     Route: 065
  8. MICAFUNGIN [Suspect]
     Active Substance: MICAFUNGIN SODIUM
     Indication: Mediastinitis
  9. MICAFUNGIN [Suspect]
     Active Substance: MICAFUNGIN SODIUM
     Indication: Thyroid disorder
  10. VANCOMYCIN [Suspect]
     Active Substance: VANCOMYCIN
     Indication: Pneumomediastinum
     Route: 065
  11. VANCOMYCIN [Suspect]
     Active Substance: VANCOMYCIN
     Indication: Thyroid disorder
  12. VANCOMYCIN [Suspect]
     Active Substance: VANCOMYCIN
     Indication: Mediastinitis

REACTIONS (4)
  - Disease progression [Unknown]
  - Empyema [Recovered/Resolved]
  - Oesophagitis [Recovered/Resolved]
  - Treatment failure [Unknown]
